FAERS Safety Report 14925465 (Version 18)
Quarter: 2020Q1

REPORT INFORMATION
  Report Type: Report from Study
  Country: BR (occurrence: BR)
  Receive Date: 20180522
  Receipt Date: 20200122
  Transmission Date: 20200409
  Serious: Yes (Life-Threatening, Hospitalization, Other)
  Sender: FDA-Public Use
  Company Number: PHHY2017BR116445

PATIENT
  Age: 77 Year
  Sex: Male
  Weight: 76 kg

DRUGS (8)
  1. SANDOSTATIN LAR DEPOT [Suspect]
     Active Substance: OCTREOTIDE ACETATE
     Indication: ACROMEGALY
     Dosage: 30 MG, QMO
     Route: 030
     Dates: start: 2014
  2. LOSARTAN. [Suspect]
     Active Substance: LOSARTAN
     Indication: DIABETES MELLITUS
     Dosage: UNK
     Route: 065
  3. ALENIA [Concomitant]
     Indication: DYSPNOEA
     Dosage: 1 DF, UNK
     Route: 065
  4. AAS [Concomitant]
     Active Substance: ASPIRIN
     Indication: PRODUCT USED FOR UNKNOWN INDICATION
     Route: 065
  5. CARVEDILOL. [Suspect]
     Active Substance: CARVEDILOL
     Indication: CARDIAC DISORDER
     Dosage: UNK
     Route: 065
  6. AEROLIN [Concomitant]
     Active Substance: ALBUTEROL
     Indication: PRODUCT USED FOR UNKNOWN INDICATION
     Dosage: UNK
     Route: 065
  7. CLOROTIAZIDA [Concomitant]
     Active Substance: CHLOROTHIAZIDE
     Indication: PRODUCT USED FOR UNKNOWN INDICATION
     Dosage: UNK
     Route: 065
  8. ASA [Concomitant]
     Active Substance: ASPIRIN
     Indication: PRODUCT USED FOR UNKNOWN INDICATION
     Dosage: UNK
     Route: 065

REACTIONS (52)
  - Asthenia [Unknown]
  - Paraesthesia [Recovering/Resolving]
  - Thinking abnormal [Unknown]
  - Hypersensitivity [Unknown]
  - Abdominal pain [Unknown]
  - Diabetes mellitus [Not Recovered/Not Resolved]
  - Dyspnoea [Not Recovered/Not Resolved]
  - Cardiac disorder [Recovering/Resolving]
  - Hypotension [Recovered/Resolved with Sequelae]
  - Dysphonia [Not Recovered/Not Resolved]
  - Pain [Recovered/Resolved]
  - Pain in extremity [Recovering/Resolving]
  - Vomiting [Recovered/Resolved]
  - Gait disturbance [Not Recovered/Not Resolved]
  - Weight decreased [Unknown]
  - Hunger [Unknown]
  - Infectious pleural effusion [Not Recovered/Not Resolved]
  - Headache [Recovered/Resolved]
  - Loss of consciousness [Recovered/Resolved]
  - Vision blurred [Unknown]
  - Pneumonia [Unknown]
  - Deafness [Unknown]
  - Syncope [Recovered/Resolved with Sequelae]
  - Abdominal distension [Unknown]
  - Injection site reaction [Recovering/Resolving]
  - Administration site movement impairment [Recovering/Resolving]
  - Constipation [Unknown]
  - Malaise [Not Recovered/Not Resolved]
  - Chills [Unknown]
  - Chest pain [Unknown]
  - Feeling cold [Unknown]
  - Arterial stenosis [Not Recovered/Not Resolved]
  - Fall [Recovered/Resolved]
  - Memory impairment [Not Recovered/Not Resolved]
  - Movement disorder [Not Recovered/Not Resolved]
  - Speech disorder [Unknown]
  - Hyperhidrosis [Unknown]
  - Diarrhoea [Recovered/Resolved]
  - Instillation site pruritus [Recovering/Resolving]
  - Fatigue [Not Recovered/Not Resolved]
  - Cerebrovascular accident [Recovered/Resolved]
  - Product storage error [Unknown]
  - Hypoaesthesia [Recovering/Resolving]
  - Dizziness [Recovered/Resolved]
  - Blood pressure increased [Unknown]
  - Emphysema [Unknown]
  - Loss of consciousness [Unknown]
  - Hypersomnia [Unknown]
  - Injection site pain [Recovered/Resolved with Sequelae]
  - Injection site swelling [Recovered/Resolved]
  - Product administered at inappropriate site [Recovered/Resolved]
  - Bacterial infection [Unknown]

NARRATIVE: CASE EVENT DATE: 2017
